FAERS Safety Report 16370901 (Version 1)
Quarter: 2019Q2

REPORT INFORMATION
  Report Type: Spontaneous
  Country: PT (occurrence: PT)
  Receive Date: 20190530
  Receipt Date: 20190530
  Transmission Date: 20190711
  Serious: Yes (Other)
  Sender: FDA-Public Use
  Company Number: PT-AUROBINDO-AUR-APL-2019-029968

PATIENT

DRUGS (8)
  1. OXALIPLATIN. [Suspect]
     Active Substance: OXALIPLATIN
     Indication: FOLLICULAR THYROID CANCER
     Dosage: UNK, CYCLICAL, 11 CYCLES
     Route: 065
     Dates: start: 201511, end: 201601
  2. SUNITINIB [Concomitant]
     Active Substance: SUNITINIB
     Dosage: UNK, ONCE DAILY
     Route: 065
     Dates: start: 201511, end: 201605
  3. GEMCITABINE [Suspect]
     Active Substance: GEMCITABINE\GEMCITABINE HYDROCHLORIDE
     Indication: FOLLICULAR THYROID CANCER
     Dosage: UNK, CYCLE, 11 CYCLES
     Route: 065
     Dates: start: 201511, end: 201601
  4. GEMCITABINE [Suspect]
     Active Substance: GEMCITABINE\GEMCITABINE HYDROCHLORIDE
     Dosage: UNK, CYCLICALLY, 2-2 WEEKS
     Route: 065
     Dates: start: 201806
  5. OXALIPLATIN. [Suspect]
     Active Substance: OXALIPLATIN
     Dosage: UNK, CYCLICAL, 2-2 WEEKS
     Route: 065
     Dates: start: 201806
  6. GEMCITABINE [Suspect]
     Active Substance: GEMCITABINE\GEMCITABINE HYDROCHLORIDE
     Dosage: UNK, CYCLICAL, 3 CYCLES
     Route: 065
     Dates: start: 201711, end: 201802
  7. OXALIPLATIN. [Suspect]
     Active Substance: OXALIPLATIN
     Dosage: UNK, CYCLICAL, 3 CYCLES
     Route: 065
     Dates: start: 201711, end: 201802
  8. SUNITINIB [Concomitant]
     Active Substance: SUNITINIB
     Indication: FOLLICULAR THYROID CANCER
     Dosage: UNK, ONCE DAILY
     Route: 065
     Dates: start: 2015

REACTIONS (2)
  - Off label use [Not Recovered/Not Resolved]
  - Neurotoxicity [Unknown]
